FAERS Safety Report 4877882-2 (Version None)
Quarter: 2006Q1

REPORT INFORMATION
  Report Type: 
  Country: None (occurrence: None)
  Receive Date: 20060109
  Receipt Date: 20051228
  Transmission Date: 20060701
  Serious: Yes (Other)
  Sender: FDA-Public Use
  Company Number: DEWYE266027DEC05

PATIENT

DRUGS (2)
  1. TREVILOR RETARD (VENLAFAXINE HYDROCHLORIDE CAPUSLE, EXTENDED RELEASE) [Suspect]
     Dosage: 75 MG 1X PER 1 DAY, ORAL
     Route: 048
     Dates: start: 20020101, end: 20050101
  2. VERAPAMIL [Concomitant]

REACTIONS (2)
  - ELECTROCARDIOGRAM QT PROLONGED [None]
  - PNEUMONIA [None]
